FAERS Safety Report 20568697 (Version 4)
Quarter: 2022Q2

REPORT INFORMATION
  Report Type: Report from Study
  Country: CL (occurrence: CL)
  Receive Date: 20220308
  Receipt Date: 20220413
  Transmission Date: 20220721
  Serious: Yes (Death, Hospitalization, Other)
  Sender: FDA-Public Use
  Company Number: CL-BRISTOL-MYERS SQUIBB COMPANY-BMS-2022-032243

PATIENT
  Age: 60 Year
  Sex: Male
  Weight: 77 kg

DRUGS (33)
  1. NIVOLUMAB [Suspect]
     Active Substance: NIVOLUMAB
     Indication: Prostate cancer
     Dosage: MOST RECENT DOSE RECEIVED ON 13-JAN-2022.
     Route: 042
     Dates: start: 20210923
  2. NIVOLUMAB [Suspect]
     Active Substance: NIVOLUMAB
  3. UREA [Concomitant]
     Active Substance: UREA
     Indication: Pruritus
     Dosage: 1 DOSAGE FORM= 1 UNITS NOS
     Route: 061
     Dates: start: 20211111
  4. UREA [Concomitant]
     Active Substance: UREA
  5. LOPERAMIDE [Concomitant]
     Active Substance: LOPERAMIDE
     Indication: Diarrhoea
     Route: 048
     Dates: start: 20211215
  6. LOPERAMIDE [Concomitant]
     Active Substance: LOPERAMIDE
  7. PREGABALIN [Concomitant]
     Active Substance: PREGABALIN
     Indication: Product used for unknown indication
     Route: 048
     Dates: start: 202107
  8. HYDROCORTISONE [Concomitant]
     Active Substance: HYDROCORTISONE
     Indication: Adrenal insufficiency
     Route: 048
     Dates: start: 20211227
  9. HYDROCORTISONE [Concomitant]
     Active Substance: HYDROCORTISONE
     Indication: Abdominal pain
     Dosage: 100 MILLIGRAM
     Route: 042
     Dates: start: 20211227, end: 20211227
  10. HYDROCORTISONE [Concomitant]
     Active Substance: HYDROCORTISONE
     Dosage: 100 MILLIGRAM
     Route: 042
     Dates: start: 20220131, end: 20220131
  11. HYDROCORTISONE [Concomitant]
     Active Substance: HYDROCORTISONE
     Dosage: 50 MILLIGRAM, Q6H
     Route: 042
     Dates: start: 20220224
  12. PAPAVERINE [Concomitant]
     Active Substance: PAPAVERINE
     Indication: Abdominal pain
     Dosage: 1 DOSAGE FORM= 1 UNIT NOS
     Route: 042
     Dates: start: 20220131, end: 20220131
  13. ONDANSETRON [Concomitant]
     Active Substance: ONDANSETRON
     Indication: Vomiting
     Dosage: 1 DOSAGE FORM= 1 UNIT NOS
     Route: 042
     Dates: start: 20220131, end: 20220131
  14. ONDANSETRON [Concomitant]
     Active Substance: ONDANSETRON
     Indication: Nausea
  15. TRAMADOL [Concomitant]
     Active Substance: TRAMADOL
     Indication: Product used for unknown indication
     Dosage: 1 DOSAGE FORM= 15 UNIT NOS
     Route: 048
     Dates: start: 2018
  16. TRAMADOL [Concomitant]
     Active Substance: TRAMADOL
     Route: 048
     Dates: start: 2018
  17. SODIUM CHLORIDE [Concomitant]
     Active Substance: SODIUM CHLORIDE
     Indication: Vomiting
     Dosage: 1 DOSAGE FORM= 500 UNITS NOS
     Route: 042
     Dates: start: 20220131, end: 20220131
  18. SODIUM CHLORIDE [Concomitant]
     Active Substance: SODIUM CHLORIDE
     Indication: Nausea
  19. PREDNISONE [Concomitant]
     Active Substance: PREDNISONE
     Indication: Pancreatitis
     Route: 048
     Dates: start: 20220205, end: 20220208
  20. PREDNISONE [Concomitant]
     Active Substance: PREDNISONE
  21. GOSERELIN [Concomitant]
     Active Substance: GOSERELIN
     Indication: Product used for unknown indication
     Route: 058
     Dates: start: 2018
  22. GOSERELIN [Concomitant]
     Active Substance: GOSERELIN
     Route: 058
     Dates: start: 2018
  23. DOMPERIDONE [Concomitant]
     Active Substance: DOMPERIDONE
     Indication: Vomiting
     Route: 048
     Dates: start: 20211020
  24. DOMPERIDONE [Concomitant]
     Active Substance: DOMPERIDONE
     Indication: Nausea
  25. ONDANSETRON [Concomitant]
     Active Substance: ONDANSETRON
     Indication: Vomiting
     Route: 048
     Dates: start: 20211020
  26. ONDANSETRON [Concomitant]
     Active Substance: ONDANSETRON
     Indication: Nausea
  27. VANCOMYCIN [Concomitant]
     Active Substance: VANCOMYCIN
     Indication: Product used for unknown indication
     Route: 042
  28. VANCOMYCIN [Concomitant]
     Active Substance: VANCOMYCIN
     Dosage: UNK
     Route: 042
  29. VORICONAZOLE [Concomitant]
     Active Substance: VORICONAZOLE
     Indication: Product used for unknown indication
     Route: 042
  30. VORICONAZOLE [Concomitant]
     Active Substance: VORICONAZOLE
     Dosage: UNK
     Route: 042
  31. ALBUMIN HUMAN [Concomitant]
     Active Substance: ALBUMIN HUMAN
     Indication: Supplementation therapy
     Route: 065
  32. ALBUMIN HUMAN [Concomitant]
     Active Substance: ALBUMIN HUMAN
     Dosage: UNK
     Route: 065
  33. METHYLPREDNISOLONE [Concomitant]
     Active Substance: METHYLPREDNISOLONE
     Indication: Adverse event
     Route: 042
     Dates: start: 20220209, end: 20220212

REACTIONS (2)
  - Immune-mediated enterocolitis [Recovering/Resolving]
  - Pneumonia [Fatal]

NARRATIVE: CASE EVENT DATE: 20220209
